FAERS Safety Report 6468214-7 (Version None)
Quarter: 2009Q4

REPORT INFORMATION
  Report Type: 
  Country: None (occurrence: None)
  Receive Date: 20091130
  Receipt Date: 20091114
  Transmission Date: 20100525
  Serious: Yes (Other)
  Sender: FDA-Public Use
  Company Number: US-1171624

PATIENT

DRUGS (1)
  1. BSS [Suspect]
     Indication: KERATOPLASTY
     Dosage: 15 ML INTRAOCULAR
     Route: 031
     Dates: start: 20091101, end: 20091101

REACTIONS (2)
  - HYPOPYON [None]
  - TOXIC ANTERIOR SEGMENT SYNDROME [None]
